FAERS Safety Report 17553753 (Version 2)
Quarter: 2020Q2

REPORT INFORMATION
  Report Type: Report from Study
  Country: IT (occurrence: IT)
  Receive Date: 20200318
  Receipt Date: 20200413
  Transmission Date: 20200713
  Serious: Yes (Hospitalization)
  Sender: FDA-Public Use
  Company Number: IT-ACCORD-176210

PATIENT
  Age: 44 Year
  Sex: Female

DRUGS (3)
  1. EN [Suspect]
     Active Substance: DELORAZEPAM
     Dosage: 2 MG TABLETS
     Route: 048
     Dates: start: 20191223, end: 20191223
  2. HALDOL [Suspect]
     Active Substance: HALOPERIDOL
     Dosage: 2 MG/ML ORAL DROPS, SOLUTION
     Route: 048
     Dates: start: 20191223, end: 20191223
  3. QUETIAPINE. [Suspect]
     Active Substance: QUETIAPINE
     Route: 048
     Dates: start: 20191223, end: 20191223

REACTIONS (5)
  - Intentional overdose [Unknown]
  - Bradyphrenia [Recovered/Resolved]
  - Hypokinesia [Recovered/Resolved]
  - Sedation [Recovered/Resolved]
  - Drug abuse [Unknown]

NARRATIVE: CASE EVENT DATE: 20191223
